FAERS Safety Report 6998316-8 (Version None)
Quarter: 2010Q3

REPORT INFORMATION
  Report Type: 
  Country: None (occurrence: None)
  Receive Date: 20100920
  Receipt Date: 20091021
  Transmission Date: 20110219
  Serious: No
  Sender: FDA-Public Use
  Company Number: US-ASTRAZENECA-2009SE21572

PATIENT
  Age: 76 Year
  Sex: Male
  Weight: 93.9 kg

DRUGS (8)
  1. SEROQUEL XR [Suspect]
     Indication: DEPRESSION
     Route: 048
  2. SEROQUEL XR [Suspect]
     Route: 048
  3. LISINOPRIL [Concomitant]
     Indication: HYPERTENSION
  4. LORAZEPAM [Concomitant]
     Indication: ANXIETY
  5. PROTONIX [Concomitant]
     Indication: GASTROOESOPHAGEAL REFLUX DISEASE
  6. OXYBUTYNIN [Concomitant]
  7. HYTRIN [Concomitant]
  8. ASPIRIN [Concomitant]

REACTIONS (4)
  - BACK PAIN [None]
  - CONFUSIONAL STATE [None]
  - PAIN IN EXTREMITY [None]
  - WEIGHT INCREASED [None]
